FAERS Safety Report 19906642 (Version 1)
Quarter: 2021Q4

REPORT INFORMATION
  Report Type: Spontaneous
  Country: GB (occurrence: GB)
  Receive Date: 20211001
  Receipt Date: 20211001
  Transmission Date: 20220303
  Serious: Yes (Disabling)
  Sender: FDA-Public Use
  Company Number: None

PATIENT
  Age: 36 Year
  Sex: Female

DRUGS (4)
  1. HYDROCORTISONE ACETATE [Suspect]
     Active Substance: HYDROCORTISONE ACETATE
     Dosage: ON ^||CHR(38)||^
     Route: 061
     Dates: start: 199203, end: 201509
  2. BETAMETHASONE VALERATE\FUSIDIC ACID [Suspect]
     Active Substance: BETAMETHASONE VALERATE\FUSIDIC ACID
     Indication: Eczema
     Dosage: ON ^||CHR(38)||^
     Route: 061
     Dates: start: 199203, end: 201509
  3. BETNOVATE [Suspect]
     Active Substance: BETAMETHASONE
     Indication: Eczema
     Dosage: ON ^||CHR(38)||^
     Route: 061
     Dates: start: 199203, end: 201509
  4. PREDNISONE [Suspect]
     Active Substance: PREDNISONE
     Indication: Eczema
     Dosage: HIGH DOSES OF PREDNISONE ON ^||CHR(38)||^
     Route: 061
     Dates: start: 199203, end: 201509

REACTIONS (2)
  - Erythema [Recovering/Resolving]
  - Steroid withdrawal syndrome [Recovering/Resolving]

NARRATIVE: CASE EVENT DATE: 20150911
